FAERS Safety Report 6615419-8 (Version None)
Quarter: 2010Q1

REPORT INFORMATION
  Report Type: 
  Country: None (occurrence: None)
  Receive Date: 20100305
  Receipt Date: 20091118
  Transmission Date: 20100710
  Serious: No
  Sender: FDA-Public Use
  Company Number: A0817734A

PATIENT
  Age: 61 Year
  Sex: Male

DRUGS (3)
  1. REQUIP [Suspect]
     Indication: RESTLESS LEGS SYNDROME
     Dosage: 2MG AT NIGHT
     Route: 048
     Dates: start: 20091111
  2. STATINS [Concomitant]
  3. AVODART [Concomitant]

REACTIONS (2)
  - AMNESIA [None]
  - VISUAL IMPAIRMENT [None]
